FAERS Safety Report 15632767 (Version 1)
Quarter: 2018Q4

REPORT INFORMATION
  Report Type: Spontaneous
  Country: US (occurrence: US)
  Receive Date: 20181119
  Receipt Date: 20181119
  Transmission Date: 20190205
  Serious: No
  Sender: FDA-Public Use
  Company Number: None

PATIENT
  Age: 42 Year
  Sex: Female
  Weight: 54 kg

DRUGS (2)
  1. CLARATIN [Concomitant]
  2. IMIQUIMOD. [Suspect]
     Active Substance: IMIQUIMOD
     Indication: MOLLUSCUM CONTAGIOSUM
     Dosage: ?          QUANTITY:12 OUNCE(S);OTHER FREQUENCY:MON, WED, FRI;?
     Route: 061
     Dates: start: 20181105, end: 20181105

REACTIONS (3)
  - Secretion discharge [None]
  - Dysphagia [None]
  - Dysgeusia [None]

NARRATIVE: CASE EVENT DATE: 20181105
